FAERS Safety Report 6248965-X (Version None)
Quarter: 2009Q2

REPORT INFORMATION
  Report Type: 
  Country: None (occurrence: None)
  Receive Date: 20090629
  Receipt Date: 20090619
  Transmission Date: 20091009
  Serious: Yes (Hospitalization)
  Sender: FDA-Public Use
  Company Number: JP-ABBOTT-09P-087-0577699-00

PATIENT
  Age: 62 Year
  Sex: Male

DRUGS (3)
  1. CLARITHROMYCIN [Suspect]
     Indication: UPPER RESPIRATORY TRACT INFLAMMATION
     Route: 048
     Dates: start: 20080105, end: 20080107
  2. FOSFOMYCIN [Concomitant]
     Indication: GASTROENTERITIS
     Route: 048
     Dates: start: 20071227, end: 20071229
  3. AMPICILLIN AND SULBACTAM [Concomitant]
     Indication: BRONCHITIS
     Route: 041

REACTIONS (1)
  - PSEUDOMEMBRANOUS COLITIS [None]
